FAERS Safety Report 17698818 (Version 1)
Quarter: 2020Q2

REPORT INFORMATION
  Report Type: Spontaneous
  Country: US (occurrence: US)
  Receive Date: 20200423
  Receipt Date: 20200423
  Transmission Date: 20200714
  Serious: No
  Sender: FDA-Public Use
  Company Number: US-UNITED THERAPEUTICS-UNT-2020-005887

PATIENT
  Age: 52 Year
  Sex: Female
  Weight: 123.36 kg

DRUGS (6)
  1. REMODULIN [Suspect]
     Active Substance: TREPROSTINIL
     Dosage: 0.010 ?G/KG, CONTINUING
     Route: 041
  2. REMODULIN [Suspect]
     Active Substance: TREPROSTINIL
     Dosage: 0.0134 ?G/KG, CONTINUING
     Route: 041
     Dates: start: 20200415
  3. REMODULIN [Suspect]
     Active Substance: TREPROSTINIL
     Indication: PULMONARY ARTERIAL HYPERTENSION
     Dosage: UNK, CONTINUING
     Route: 041
     Dates: start: 20200221
  4. REMODULIN [Suspect]
     Active Substance: TREPROSTINIL
     Dosage: 0.011 ?G/KG, CONTINUING
     Route: 041
  5. OPSUMIT [Concomitant]
     Active Substance: MACITENTAN
     Indication: PRODUCT USED FOR UNKNOWN INDICATION
     Dosage: UNK
     Route: 065
  6. REMODULIN [Suspect]
     Active Substance: TREPROSTINIL
     Dosage: 0.009 ?G/KG, CONTINUING
     Route: 041

REACTIONS (4)
  - Hyperventilation [Unknown]
  - Wrong dose [Unknown]
  - Respiratory rate increased [Unknown]
  - Product preparation error [Unknown]

NARRATIVE: CASE EVENT DATE: 20200415
